FAERS Safety Report 8454081-9 (Version None)
Quarter: 2012Q2

REPORT INFORMATION
  Report Type: 
  Country: None (occurrence: None)
  Receive Date: 20120620
  Receipt Date: 20120613
  Transmission Date: 20120825
  Serious: Yes (Hospitalization)
  Sender: FDA-Public Use
  Company Number: PL-PFIZER INC-2012095749

PATIENT
  Age: 57 Year
  Sex: Male

DRUGS (6)
  1. TEMSIROLIMUS [Suspect]
     Dosage: 25 MG, UNK
     Route: 042
     Dates: start: 20120327
  2. TEMSIROLIMUS [Suspect]
     Dosage: 25 MG, UNK
     Dates: start: 20120430
  3. DESIPRAMIDE HCL [Suspect]
     Indication: MANTLE CELL LYMPHOMA
     Dosage: 50 MG, WEEKLY FOR 2 WEEKS
     Route: 048
     Dates: start: 20111003, end: 20111010
  4. TEMSIROLIMUS [Suspect]
     Dosage: 75 MG, AFTER 175 MG DOSE, THEN ONCE WEEKLY
     Route: 042
     Dates: start: 20111031, end: 20111115
  5. TEMSIROLIMUS [Suspect]
     Dosage: 50 MG, UNK
     Route: 042
     Dates: start: 20111122, end: 20120320
  6. TEMSIROLIMUS [Suspect]
     Indication: MANTLE CELL LYMPHOMA
     Dosage: 175 MG, ONCE WEEKLY FOR THE FIRST 3 WEEKS
     Route: 042
     Dates: start: 20111010, end: 20111017

REACTIONS (1)
  - SINUSITIS [None]
